FAERS Safety Report 12140175 (Version 1)
Quarter: 2016Q1

REPORT INFORMATION
  Report Type: Spontaneous
  Country: US (occurrence: None)
  Receive Date: 20160302
  Receipt Date: 20160302
  Transmission Date: 20160526
  Serious: Yes (Other)
  Sender: FDA-Public Use
  Company Number: None

PATIENT
  Age: 63 Year
  Sex: Male
  Weight: 99.79 kg

DRUGS (2)
  1. SUBOXONE [Suspect]
     Active Substance: BUPRENORPHINE HYDROCHLORIDE\NALOXONE HYDROCHLORIDE
     Indication: PAIN
     Dosage: 1 OR 2 DAILY ORAL
     Route: 048
     Dates: start: 201503, end: 201512
  2. SUBOXONE [Suspect]
     Active Substance: BUPRENORPHINE HYDROCHLORIDE\NALOXONE HYDROCHLORIDE
     Indication: DEPENDENCE
     Dosage: 1 OR 2 DAILY ORAL
     Route: 048
     Dates: start: 201503, end: 201512

REACTIONS (4)
  - Dyspnoea [None]
  - Rash [None]
  - Headache [None]
  - Hepatic pain [None]

NARRATIVE: CASE EVENT DATE: 2015
